FAERS Safety Report 7323795-6 (Version None)
Quarter: 2011Q1

REPORT INFORMATION
  Report Type: 
  Country: None (occurrence: None)
  Receive Date: 20110301
  Receipt Date: 20110223
  Transmission Date: 20110831
  Serious: Yes (Hospitalization)
  Sender: FDA-Public Use
  Company Number: A0759689A

PATIENT
  Age: 49 Year
  Sex: Female
  Weight: 73.9 kg

DRUGS (3)
  1. CARBOPLATIN [Suspect]
     Indication: BREAST CANCER METASTATIC
     Dosage: 246MG CYCLIC
     Route: 042
     Dates: start: 20081119
  2. LAPATINIB [Suspect]
     Indication: BREAST CANCER METASTATIC
     Dosage: 1000MG PER DAY
     Route: 048
     Dates: start: 20081119, end: 20081129
  3. PACLITAXEL [Suspect]
     Indication: BREAST CANCER METASTATIC
     Dosage: 80MGM2 CYCLIC
     Route: 042
     Dates: start: 20081119

REACTIONS (7)
  - FEBRILE NEUTROPENIA [None]
  - STAPHYLOCOCCAL INFECTION [None]
  - DEEP VEIN THROMBOSIS [None]
  - BLOOD POTASSIUM DECREASED [None]
  - VOMITING [None]
  - DEVICE RELATED INFECTION [None]
  - STAPHYLOCOCCAL BACTERAEMIA [None]
